FAERS Safety Report 26068023 (Version 2)
Quarter: 2025Q4

REPORT INFORMATION
  Report Type: Spontaneous
  Country: EU (occurrence: EU)
  Receive Date: 20251120
  Receipt Date: 20251126
  Transmission Date: 20260118
  Serious: Yes (Other)
  Sender: AUROBINDO
  Company Number: EU-MLMSERVICE-20251103-PI696834-00099-1

PATIENT
  Age: 58 Year
  Sex: Male

DRUGS (3)
  1. CIPROFLOXACIN [Suspect]
     Active Substance: CIPROFLOXACIN
     Indication: Urinary tract infection
     Dosage: UNK
     Route: 065
  2. DANTROLENE [Concomitant]
     Active Substance: DANTROLENE
     Indication: Neuroleptic malignant syndrome
     Route: 065
  3. DANTROLENE [Concomitant]
     Active Substance: DANTROLENE
     Indication: Catatonia

REACTIONS (4)
  - Malignant catatonia [Recovering/Resolving]
  - Neuropsychological symptoms [Recovering/Resolving]
  - Condition aggravated [Recovering/Resolving]
  - Drug-disease interaction [Recovering/Resolving]
